FAERS Safety Report 7187828-2 (Version None)
Quarter: 2010Q4

REPORT INFORMATION
  Report Type: 
  Country: None (occurrence: None)
  Receive Date: 20101222
  Receipt Date: 20100709
  Transmission Date: 20110411
  Serious: No
  Sender: FDA-Public Use
  Company Number: US-AMGEN-KDL423303

PATIENT

DRUGS (7)
  1. ENBREL [Suspect]
     Indication: PRODUCT USED FOR UNKNOWN INDICATION
     Dosage: 50 MG, QWK
     Route: 058
  2. HYDROXYCHLOROQUINE SULFATE [Concomitant]
     Dosage: 200 MG, UNK
  3. PREDNISONE [Concomitant]
     Dosage: 5 MG, UNK
  4. ESOMEPRAZOLE MAGNESIUM [Concomitant]
     Dosage: 40 MG, UNK
  5. CLINDAMYCIN [Concomitant]
     Dosage: 150 MG, UNK
  6. TRIMETHOPRIM + SULFAMETHOXAZOLE [Concomitant]
     Dosage: UNK UNK, UNK
  7. CALCIUM WITH VITAMIN D [Concomitant]
     Dosage: UNK UNK, UNK

REACTIONS (2)
  - CYST [None]
  - STAPHYLOCOCCAL INFECTION [None]
